FAERS Safety Report 6998804-4 (Version None)
Quarter: 2010Q3

REPORT INFORMATION
  Report Type: 
  Country: None (occurrence: None)
  Receive Date: 20100920
  Receipt Date: 20100112
  Transmission Date: 20110219
  Serious: Yes (Hospitalization, Other)
  Sender: FDA-Public Use
  Company Number: US-ASTRAZENECA-2009UW20459

PATIENT
  Age: 29 Year
  Sex: Female

DRUGS (8)
  1. SEROQUEL [Suspect]
     Indication: BIPOLAR DISORDER
     Route: 048
     Dates: start: 20000101, end: 20080101
  2. SEROQUEL [Suspect]
     Indication: PERSONALITY DISORDER
     Route: 048
     Dates: start: 20000101, end: 20080101
  3. TOPAMAX [Concomitant]
     Indication: BIPOLAR DISORDER
  4. TRAZODONE HCL [Concomitant]
     Indication: DEPRESSION
  5. RISPERDAL [Concomitant]
  6. THORAZINE [Concomitant]
  7. ZYPREXA [Concomitant]
  8. ABILIFY [Concomitant]

REACTIONS (3)
  - DRUG EXPOSURE DURING PREGNANCY [None]
  - PANCREATITIS [None]
  - TARDIVE DYSKINESIA [None]
